FAERS Safety Report 7651180-6 (Version None)
Quarter: 2011Q3

REPORT INFORMATION
  Report Type: 
  Country: None (occurrence: None)
  Receive Date: 20110802
  Receipt Date: 20101214
  Transmission Date: 20111222
  Serious: Yes (Death)
  Sender: FDA-Public Use
  Company Number: US-BAYER-201029503NA

PATIENT
  Sex: Male
  Weight: 100.23 kg

DRUGS (63)
  1. MAGNEVIST [Suspect]
     Dosage: 15 ML, ONCE
     Route: 042
     Dates: start: 20010307, end: 20010307
  2. NORVASC [Concomitant]
     Dosage: 15 MG, QD
     Route: 048
  3. INSULIN [Concomitant]
     Dosage: UNK
     Route: 058
     Dates: start: 20000301
  4. LOVENOX [Concomitant]
     Dosage: 60 MG, EVERY 12 HOURS
  5. ASPIRIN [Concomitant]
     Dosage: 325 MG, QD
     Route: 048
  6. CELEBREX [Concomitant]
     Indication: ANALGESIC THERAPY
     Dosage: 100 MG, BID
     Route: 048
  7. FLUCONAZOLE [Concomitant]
     Dosage: 400 MG, QD
     Route: 048
     Dates: start: 20010301
  8. PLASMA [Concomitant]
     Dosage: UNK
     Dates: start: 20010201, end: 20010301
  9. MAGNEVIST [Suspect]
     Dosage: 14 ML, ONCE
     Route: 042
     Dates: start: 20020102, end: 20020102
  10. ANCEF [Concomitant]
     Dosage: 2 G, ON DIALYSIS DAYS
     Route: 042
     Dates: start: 20001101
  11. NYSTATIN [Concomitant]
     Dosage: 5-15 ML S/S, QID
     Dates: start: 20001101
  12. TOBRAMYCIN [Concomitant]
     Dosage: UNK
     Dates: start: 20001101
  13. OPTIMARK [Suspect]
     Indication: ARTHROGRAM
  14. FLAGYL [Concomitant]
     Indication: CLOSTRIDIUM DIFFICILE COLITIS
     Dosage: 250 MG, TID TO QID
  15. NEPHROCAPS [Concomitant]
     Dosage: 1 DAILY
     Route: 048
  16. PARICALCITOL [Concomitant]
     Indication: HYPERPARATHYROIDISM SECONDARY
     Dosage: 2 ?G, TIW (M, W, F) DURING DIALYSIS
     Route: 042
  17. LASIX [Concomitant]
     Dosage: 80 MG, QD
  18. NAFCILLIN [Concomitant]
     Dosage: 2 G Q4 TO 12H AND POSTDIALYSIS
     Route: 042
     Dates: start: 20001101
  19. DEXAMETHASONE [Concomitant]
     Dosage: UNK
     Dates: start: 20020101
  20. OMNISCAN [Suspect]
     Indication: NUCLEAR MAGNETIC RESONANCE IMAGING
     Dosage: 0.2ML/KG UP TO MAX DOSE OF 20ML
     Route: 042
     Dates: start: 20001114, end: 20001114
  21. CLONIDINE [Concomitant]
     Dosage: 0.4 MG, BID
  22. CEFAZOLIN [Concomitant]
     Dosage: 3 G Q12H AND AFTER EVERY DIALYSIS
     Route: 042
  23. CELEBREX [Concomitant]
     Indication: TENDERNESS
  24. CELEBREX [Concomitant]
     Indication: MUSCULOSKELETAL STIFFNESS
  25. MIDODRINE HYDROCHLORIDE [Concomitant]
     Indication: HYPOTENSION
     Dosage: 10 MG, TIW (M, W, F) 30 MIN BEFORE DIALYSIS
     Route: 048
  26. GENTAMICIN [Concomitant]
     Dosage: 80 MG AFTER HEMODIALYSIS
     Route: 042
     Dates: start: 20020122, end: 20020131
  27. RED BLOOD CELLS [Concomitant]
     Dosage: UNK
     Dates: start: 20010201, end: 20010301
  28. PROHANCE [Suspect]
     Indication: NUCLEAR MAGNETIC RESONANCE IMAGING
  29. MULTIHANCE [Suspect]
     Indication: NUCLEAR MAGNETIC RESONANCE IMAGING
  30. OPTIMARK [Suspect]
     Indication: NUCLEAR MAGNETIC RESONANCE IMAGING
  31. FLEXERIL [Concomitant]
  32. EPOGEN [Concomitant]
     Indication: ANAEMIA
     Dosage: 6000 TO 27000 U
     Route: 058
  33. DIGOXIN [Concomitant]
     Dosage: 0.125 MG, QD
     Route: 048
  34. GENTAMICIN [Concomitant]
     Dosage: 75 MG, TIW (MWF) AFTER DIALYSIS
     Route: 042
     Dates: start: 20001101
  35. VANCOMYCIN [Concomitant]
     Dosage: 1 G Q48H
  36. VIOXX [Concomitant]
     Dosage: 25 MG, QD
     Dates: start: 20001101
  37. RIFAMPIN [Concomitant]
     Dosage: UNK
     Dates: start: 20020101
  38. OMNISCAN [Suspect]
     Indication: ANGIOGRAM
     Dosage: 0.2ML/KG UP TO MAX DOSE OF 20ML
     Route: 042
     Dates: start: 20010219, end: 20010219
  39. OMNISCAN [Suspect]
     Dosage: 20 ML, ONCE
     Dates: start: 20010727, end: 20010727
  40. PROHANCE [Suspect]
     Indication: ANGIOGRAM
  41. MULTIHANCE [Suspect]
     Indication: ANGIOGRAM
  42. ANCEF [Concomitant]
     Dosage: 1G, ON ALTERNATIVE DAYS
     Route: 042
     Dates: start: 20001101
  43. HEPARIN [Concomitant]
     Dosage: 5000 U, QD
  44. ASPIRIN [Concomitant]
     Indication: PAIN
     Dosage: 81 MG, QD
     Route: 048
  45. METOPROLOL TARTRATE [Concomitant]
     Dosage: 25 MG, BID
     Route: 048
  46. UNASYN [Concomitant]
     Dosage: 1.5 MG Q12H
     Route: 042
     Dates: start: 20001101, end: 20001126
  47. MAGNEVIST [Suspect]
     Indication: ANGIOGRAM
     Dosage: 15 ML, ONCE
     Route: 042
     Dates: start: 20010226, end: 20010226
  48. MAGNEVIST [Suspect]
     Indication: NUCLEAR MAGNETIC RESONANCE IMAGING
     Dosage: 20 ML, ONCE
     Route: 042
     Dates: start: 20010305, end: 20010305
  49. MAGNEVIST [Suspect]
     Dosage: 15 ML, ONCE
     Route: 042
     Dates: start: 20011218, end: 20011218
  50. GLYPERIDE [Concomitant]
  51. LISINOPRIL [Concomitant]
     Dosage: 10 MG, QD
     Route: 048
  52. RENAGEL [Concomitant]
     Indication: BLOOD PHOSPHORUS INCREASED
     Dosage: 403 MG, OR 2 CAPS TID WITH MEALS
     Route: 048
  53. IRON DEXTRAN [Concomitant]
     Dosage: 100 MG, WITH DIALYSIS
     Route: 042
     Dates: start: 20010201
  54. FERRLECIT [Concomitant]
     Dosage: 125 MG, UNK
     Route: 042
     Dates: start: 20020101
  55. MAGNEVIST [Suspect]
     Dosage: 15 TO 20 CC
     Dates: start: 20010620, end: 20010620
  56. CIPROFLAXACIN [Concomitant]
     Route: 048
  57. COUMADIN [Concomitant]
     Dosage: 2 TO 4 MG DAILY
  58. PHOSLO [Concomitant]
     Dosage: 667 MG, 1 TO 2 TABLETS TID
     Route: 048
  59. GENTAMICIN [Concomitant]
     Dosage: 80 MG, UNK
     Route: 042
     Dates: start: 20001101
  60. CELEBREX [Concomitant]
     Indication: SWELLING
  61. COZAAR [Concomitant]
     Dosage: 25 MG, QD
  62. AMPICILLIN SODIUM [Concomitant]
     Dosage: 2 G Q12H GIVEN IMMEDIATELY AFTER DIALYSIS
     Route: 042
     Dates: start: 20011201, end: 20020101
  63. TORADOL [Concomitant]
     Dosage: 15-30 MG Q6H AS NEEDED
     Route: 042
     Dates: start: 20001101

REACTIONS (11)
  - SKIN TIGHTNESS [None]
  - NEPHROGENIC SYSTEMIC FIBROSIS [None]
  - SKIN HYPERTROPHY [None]
  - ANXIETY [None]
  - EMOTIONAL DISTRESS [None]
  - ANHEDONIA [None]
  - MUSCULAR WEAKNESS [None]
  - PAIN [None]
  - SKIN SWELLING [None]
  - MOBILITY DECREASED [None]
  - JOINT RANGE OF MOTION DECREASED [None]
